FAERS Safety Report 5148122-4 (Version None)
Quarter: 2006Q4

REPORT INFORMATION
  Report Type: 
  Country: None (occurrence: None)
  Receive Date: 20061106
  Receipt Date: 20061025
  Transmission Date: 20070319
  Serious: Yes (Other)
  Sender: FDA-Public Use
  Company Number: 2006123286

PATIENT
  Age: 90 Year
  Sex: Female

DRUGS (5)
  1. NORVASC [Suspect]
     Dosage: 5 MG, ORAL
     Route: 048
     Dates: start: 20031001, end: 20060901
  2. CETAPRIL (ALACEPRIL) [Concomitant]
  3. NEUQUINON (UBIDECARENONE) [Concomitant]
  4. SIGMART (NICORANDIL) [Concomitant]
  5. MAXIPIME [Concomitant]

REACTIONS (4)
  - ALANINE AMINOTRANSFERASE INCREASED [None]
  - ASPARTATE AMINOTRANSFERASE INCREASED [None]
  - GAMMA-GLUTAMYLTRANSFERASE INCREASED [None]
  - HEPATIC FUNCTION ABNORMAL [None]
